FAERS Safety Report 4930333-1 (Version None)
Quarter: 2006Q1

REPORT INFORMATION
  Report Type: 
  Country: None (occurrence: None)
  Receive Date: 20060228
  Receipt Date: 20060214
  Transmission Date: 20060701
  Serious: Yes (Other)
  Sender: FDA-Public Use
  Company Number: 222170

PATIENT
  Sex: Male

DRUGS (8)
  1. AVASTIN [Suspect]
     Indication: MACULAR DEGENERATION
     Dosage: INTRAOCULAR
     Route: 031
     Dates: start: 20051215
  2. DIGOXIN [Concomitant]
  3. PRAVACHOL [Concomitant]
  4. ZETIA [Concomitant]
  5. LASIX [Concomitant]
  6. PRESERVISION WITH LUTEIN (ASCORBIC ACID, COPPER NOS, LUTEIN, VITAMIN E [Concomitant]
  7. VITAMINS (VITAMINS NOS) [Concomitant]
  8. CALCIUM (CALCIUM NOS) [Concomitant]

REACTIONS (2)
  - CARDIAC FAILURE ACUTE [None]
  - FATIGUE [None]
